FAERS Safety Report 24540111 (Version 1)
Quarter: 2024Q4

REPORT INFORMATION
  Report Type: Spontaneous
  Country: US (occurrence: US)
  Receive Date: 20241023
  Receipt Date: 20241023
  Transmission Date: 20250114
  Serious: No
  Sender: BAYER HEALTHCARE LLC
  Company Number: US-BAYER-2024A150738

PATIENT
  Age: 69 Year
  Sex: Female

DRUGS (6)
  1. ALEVE [Suspect]
     Active Substance: NAPROXEN SODIUM
     Indication: Pain
     Dosage: 160 UNK
  2. BRUKINSA [Suspect]
     Active Substance: ZANUBRUTINIB
     Indication: Waldenstrom^s macroglobulinaemia
     Dosage: 160 MG, BID
     Route: 048
     Dates: start: 20231230
  3. BRUKINSA [Suspect]
     Active Substance: ZANUBRUTINIB
     Indication: Waldenstrom^s macroglobulinaemia
     Dosage: 160 MG, BID
     Route: 048
     Dates: start: 20231230
  4. BRUKINSA [Suspect]
     Active Substance: ZANUBRUTINIB
     Indication: Waldenstrom^s macroglobulinaemia
     Dosage: 160 MG, BID
     Route: 048
     Dates: start: 20231230
  5. BRUKINSA [Suspect]
     Active Substance: ZANUBRUTINIB
     Indication: Waldenstrom^s macroglobulinaemia
     Dosage: 160 MG, BID
     Route: 048
     Dates: start: 20231230
  6. BRUKINSA [Suspect]
     Active Substance: ZANUBRUTINIB
     Indication: Waldenstrom^s macroglobulinaemia
     Dosage: 160 MG, BID
     Route: 048
     Dates: start: 20231230

REACTIONS (13)
  - Onychoclasis [None]
  - Dry eye [None]
  - Dacryostenosis acquired [None]
  - Punctal plug insertion [None]
  - Weight increased [None]
  - Arthralgia [None]
  - Dyspepsia [None]
  - Road traffic accident [None]
  - Skin abrasion [None]
  - COVID-19 [None]
  - Product dose omission issue [None]
  - Accidental overdose [None]
  - Product dose omission in error [None]
